FAERS Safety Report 9333567 (Version 1)
Quarter: 2013Q2

REPORT INFORMATION
  Report Type: Spontaneous
  Country: US (occurrence: US)
  Receive Date: 20130606
  Receipt Date: 20130606
  Transmission Date: 20140414
  Serious: No
  Sender: FDA-Public Use
  Company Number: US-AMGEN-USASP2013007420

PATIENT
  Age: 67 Year
  Sex: Male
  Weight: 89.12 kg

DRUGS (2)
  1. XGEVA [Suspect]
     Indication: PROSTATE CANCER METASTATIC
     Dosage: 120 MG, QMO
     Route: 058
     Dates: start: 20111004
  2. XGEVA [Suspect]
     Dosage: 120 MG, QMO
     Route: 058
     Dates: start: 20130325

REACTIONS (1)
  - Blood calcium increased [Unknown]
